FAERS Safety Report 8129023-6 (Version None)
Quarter: 2012Q1

REPORT INFORMATION
  Report Type: 
  Country: None (occurrence: None)
  Receive Date: 20120210
  Receipt Date: 20110805
  Transmission Date: 20120608
  Serious: Yes (Other)
  Sender: FDA-Public Use
  Company Number: US-BRISTOL-MYERS SQUIBB COMPANY-15950397

PATIENT
  Age: 68 Year
  Sex: Female

DRUGS (4)
  1. ORENCIA [Suspect]
  2. PRAVASTATIN [Concomitant]
     Indication: BLOOD CHOLESTEROL
  3. PLAQUENIL [Concomitant]
  4. SYNTHROID [Concomitant]
     Indication: HYPOTHYROIDISM

REACTIONS (2)
  - ARTHRALGIA [None]
  - SKIN CANCER [None]
